FAERS Safety Report 8762056 (Version 3)
Quarter: 2012Q4

REPORT INFORMATION
  Report Type: 
  Country: JP (occurrence: JP)
  Receive Date: 20120830
  Receipt Date: 20121221
  Transmission Date: 20130627
  Serious: Yes (Hospitalization)
  Sender: FDA-Public Use
  Company Number: JP-PFIZER INC-2012209226

PATIENT
  Age: 79 Year
  Sex: Male
  Weight: 61 kg

DRUGS (8)
  1. LYRICA [Suspect]
     Indication: NUMBNESS
     Dosage: 25 mg, 3x/day
     Route: 048
     Dates: start: 20120723, end: 20120802
  2. LYRICA [Suspect]
     Indication: LOW BACK PAIN
     Dosage: 75 mg, 2x/day
     Route: 048
     Dates: start: 20120803, end: 20120807
  3. LYRICA [Suspect]
     Dosage: 75 mg, 1x/day
     Route: 048
     Dates: start: 20120808, end: 20120824
  4. CIBENOL [Suspect]
     Dosage: 300 mg/day
     Route: 048
  5. HERBESSER [Suspect]
     Dosage: 100 mg/day
     Route: 048
  6. DEPAS [Concomitant]
     Dosage: 1 mg/day
     Route: 048
  7. WARFARIN [Concomitant]
     Dosage: UNK
     Route: 048
  8. PARIET [Concomitant]
     Dosage: UNK
     Route: 048

REACTIONS (1)
  - Bradycardia [Recovered/Resolved]
